FAERS Safety Report 11057900 (Version 1)
Quarter: 2015Q2

REPORT INFORMATION
  Report Type: Spontaneous
  Country: DE (occurrence: DE)
  Receive Date: 20150423
  Receipt Date: 20150423
  Transmission Date: 20150821
  Serious: Yes (Other)
  Sender: FDA-Public Use
  Company Number: DE-ROCHE-1566255

PATIENT
  Age: 54 Year
  Sex: Female

DRUGS (3)
  1. ZELBORAF [Suspect]
     Active Substance: VEMURAFENIB
     Indication: PRODUCT USED FOR UNKNOWN INDICATION
     Route: 065
     Dates: start: 201409, end: 201412
  2. ZELBORAF [Suspect]
     Active Substance: VEMURAFENIB
     Route: 065
     Dates: start: 201501
  3. MEGESTAT [Concomitant]
     Active Substance: MEGESTROL ACETATE

REACTIONS (13)
  - Pulmonary embolism [Unknown]
  - Erythema nodosum [Recovering/Resolving]
  - Arthralgia [Recovering/Resolving]
  - Ascites [Unknown]
  - Weight decreased [Recovering/Resolving]
  - Pleural effusion [Unknown]
  - General physical health deterioration [Unknown]
  - Dysgeusia [Unknown]
  - Fatigue [Recovering/Resolving]
  - Oedema [Unknown]
  - Oedema peripheral [Unknown]
  - Decreased appetite [Unknown]
  - Asthenia [Unknown]

NARRATIVE: CASE EVENT DATE: 20141103
